FAERS Safety Report 20436596 (Version 3)
Quarter: 2022Q1

REPORT INFORMATION
  Report Type: Spontaneous
  Country: JP (occurrence: None)
  Receive Date: 20220207
  Receipt Date: 20220308
  Transmission Date: 20220424
  Serious: Yes (Other)
  Sender: FDA-Public Use
  Company Number: JP-Orion Corporation ORION PHARMA-ENTC2022-0030

PATIENT
  Age: 89 Year
  Sex: Female

DRUGS (1)
  1. STALEVO [Suspect]
     Active Substance: CARBIDOPA\ENTACAPONE\LEVODOPA
     Indication: Parkinson^s disease
     Dosage: STRENGTH: CARBIDOPA 10MG, ENTACAPONE 100MG, LEVODOPA 100MG
     Route: 048

REACTIONS (3)
  - Dysphagia [Unknown]
  - Fracture [Unknown]
  - Fall [Unknown]
